FAERS Safety Report 15801279 (Version 2)
Quarter: 2019Q1

REPORT INFORMATION
  Report Type: Report from Study
  Country: GB (occurrence: GB)
  Receive Date: 20190109
  Receipt Date: 20190320
  Transmission Date: 20190417
  Serious: Yes (Hospitalization)
  Sender: FDA-Public Use
  Company Number: GB-TAKEDA-2017MPI005826

PATIENT
  Age: 54 Year
  Sex: Female
  Weight: 98 kg

DRUGS (14)
  1. DECADRON [Suspect]
     Active Substance: DEXAMETHASONE
     Dosage: 10 MG, UNK
     Route: 048
     Dates: start: 20170725, end: 20171019
  2. PLATINOL [Concomitant]
     Active Substance: CISPLATIN
     Indication: PLASMA CELL MYELOMA
     Dosage: 22 MG, UNK
     Route: 042
     Dates: start: 20171207, end: 20180102
  3. ETOPOSIDE. [Concomitant]
     Active Substance: ETOPOSIDE
     Indication: PLASMA CELL MYELOMA
     Dosage: 80 MG, UNK
     Route: 042
     Dates: start: 20171207, end: 20180102
  4. ALKERAN [Concomitant]
     Active Substance: MELPHALAN
     Dosage: 238 MG, UNK
     Route: 042
     Dates: start: 20180808, end: 20180808
  5. BORTEZOMIB. [Suspect]
     Active Substance: BORTEZOMIB
     Indication: PLASMA CELL MYELOMA
     Dosage: 2.75 MG, UNK
     Route: 042
     Dates: start: 20170606
  6. BORTEZOMIB. [Suspect]
     Active Substance: BORTEZOMIB
     Dosage: 1.45 MG, UNK
     Route: 042
     Dates: start: 20170625, end: 20181019
  7. THALOMID [Suspect]
     Active Substance: THALIDOMIDE
     Dosage: 100 MG, QD
     Route: 048
     Dates: start: 20170725, end: 20171019
  8. ALKERAN [Concomitant]
     Active Substance: MELPHALAN
     Indication: PLASMA CELL MYELOMA
     Dosage: 200 MG/M2, UNK
     Route: 042
     Dates: start: 20180327, end: 20180327
  9. TINZAPARIN [Concomitant]
     Active Substance: TINZAPARIN
     Indication: THROMBOSIS PROPHYLAXIS
     Dosage: UNK
     Route: 065
  10. THALOMID [Suspect]
     Active Substance: THALIDOMIDE
     Dosage: 100 MG, UNK
     Route: 048
     Dates: start: 20171207, end: 20180126
  11. CYTOXAN [Concomitant]
     Active Substance: CYCLOPHOSPHAMIDE
     Indication: PLASMA CELL MYELOMA
     Dosage: 800 MG, UNK
     Route: 042
     Dates: start: 20171207, end: 20180102
  12. DECADRON [Suspect]
     Active Substance: DEXAMETHASONE
     Indication: PLASMA CELL MYELOMA
     Dosage: 20 MG, UNK
     Route: 048
     Dates: start: 20170606
  13. THALOMID [Suspect]
     Active Substance: THALIDOMIDE
     Indication: PLASMA CELL MYELOMA
     Dosage: 50 MG, UNK
     Route: 048
     Dates: start: 20170606
  14. ADRIAMYCIN [Concomitant]
     Active Substance: DOXORUBICIN HYDROCHLORIDE
     Indication: PLASMA CELL MYELOMA
     Dosage: 22 MG, UNK
     Route: 042
     Dates: start: 20171207, end: 20180102

REACTIONS (3)
  - Pathological fracture [Recovered/Resolved]
  - Humerus fracture [Recovered/Resolved]
  - Infection [Recovered/Resolved]

NARRATIVE: CASE EVENT DATE: 20170623
